FAERS Safety Report 5284347-5 (Version None)
Quarter: 2007Q1

REPORT INFORMATION
  Report Type: 
  Country: None (occurrence: None)
  Receive Date: 20070330
  Receipt Date: 20070330
  Transmission Date: 20070707
  Serious: No
  Sender: FDA-Public Use
  Company Number: None

PATIENT
  Sex: Male
  Weight: 76.2 kg

DRUGS (1)
  1. TAXOTERE [Suspect]
     Dosage: 142 MG

REACTIONS (1)
  - NEUTROPHIL COUNT DECREASED [None]
